FAERS Safety Report 7771464-0 (Version None)
Quarter: 2011Q3

REPORT INFORMATION
  Report Type: 
  Country: None (occurrence: None)
  Receive Date: 20110922
  Receipt Date: 20110510
  Transmission Date: 20111222
  Serious: No
  Sender: FDA-Public Use
  Company Number: US-ASTRAZENECA-2011SE28359

PATIENT
  Sex: Female

DRUGS (1)
  1. SEROQUEL XR [Suspect]
     Route: 048

REACTIONS (8)
  - SPEECH DISORDER [None]
  - MUSCULOSKELETAL STIFFNESS [None]
  - HEADACHE [None]
  - FEELING HOT [None]
  - FEELING ABNORMAL [None]
  - ASTHENIA [None]
  - LETHARGY [None]
  - NIGHT SWEATS [None]
